FAERS Safety Report 8160368-X (Version None)
Quarter: 2012Q1

REPORT INFORMATION
  Report Type: 
  Country: None (occurrence: None)
  Receive Date: 20120223
  Receipt Date: 20120215
  Transmission Date: 20120608
  Serious: Yes (Hospitalization, Other)
  Sender: FDA-Public Use
  Company Number: DE-ABBOTT-12P-062-0904974-00

PATIENT
  Sex: Female
  Weight: 85 kg

DRUGS (3)
  1. HUMIRA [Suspect]
     Indication: CROHN'S DISEASE
     Route: 058
     Dates: start: 20110801, end: 20111101
  2. PANTOPRAZOLE [Concomitant]
     Indication: STAPHYLOCOCCAL INFECTION
     Dosage: 20 MG ONCE A DAY
  3. METAMIZOL [Concomitant]
     Indication: STAPHYLOCOCCAL INFECTION
     Dosage: 1 GRAM 4 TIMES/DAY

REACTIONS (6)
  - ENTEROCUTANEOUS FISTULA [None]
  - GASTROINTESTINAL STOMA COMPLICATION [None]
  - STAPHYLOCOCCAL INFECTION [None]
  - WOUND SECRETION [None]
  - MESENTERIC LYMPHADENOPATHY [None]
  - PROCEDURAL SITE REACTION [None]
